FAERS Safety Report 16278535 (Version 1)
Quarter: 2019Q2

REPORT INFORMATION
  Report Type: Spontaneous
  Country: US (occurrence: US)
  Receive Date: 20190506
  Receipt Date: 20190506
  Transmission Date: 20190711
  Serious: No
  Sender: FDA-Public Use
  Company Number: US-ACTELION-A-US2019-189031

PATIENT
  Age: 65 Year
  Sex: Female

DRUGS (12)
  1. PLETAL [Concomitant]
     Active Substance: CILOSTAZOL
  2. LASIX [Concomitant]
     Active Substance: FUROSEMIDE
  3. ASA [Concomitant]
     Active Substance: ASPIRIN
  4. UPTRAVI [Suspect]
     Active Substance: SELEXIPAG
     Indication: PRODUCT USED FOR UNKNOWN INDICATION
     Route: 048
  5. AMBRISENTAN [Suspect]
     Active Substance: AMBRISENTAN
     Indication: PULMONARY HYPERTENSION
     Dosage: 10 MG, QD
     Route: 065
     Dates: start: 20190212
  6. ADCIRCA [Suspect]
     Active Substance: TADALAFIL
     Indication: PRODUCT USED FOR UNKNOWN INDICATION
     Route: 065
  7. ALDACTONE [Concomitant]
     Active Substance: SPIRONOLACTONE
  8. LYRICA [Concomitant]
     Active Substance: PREGABALIN
  9. PANTORICA [Concomitant]
  10. TRENTAL [Concomitant]
     Active Substance: PENTOXIFYLLINE
  11. SYNTHROID [Concomitant]
     Active Substance: LEVOTHYROXINE SODIUM
  12. INTERFERON [Concomitant]
     Active Substance: INTERFERON

REACTIONS (1)
  - Fall [Recovered/Resolved]
